FAERS Safety Report 4622116-7 (Version None)
Quarter: 2005Q1

REPORT INFORMATION
  Report Type: 
  Country: None (occurrence: None)
  Receive Date: 20050329
  Receipt Date: 20050315
  Transmission Date: 20050727
  Serious: Yes (Death, Other)
  Sender: FDA-Public Use
  Company Number: 2005046058

PATIENT
  Sex: 0

DRUGS (4)
  1. VORICONAZOLE (VORICONAZOLE) [Suspect]
     Indication: ANTIFUNGAL PROPHYLAXIS
     Dosage: 2 IN 1 D
  2. TACROLIMUS (TACROLIMUS) [Suspect]
  3. METHOTREXATE [Concomitant]
  4. FLUOROURACIL [Concomitant]

REACTIONS (5)
  - ASPERGILLOSIS [None]
  - DRUG LEVEL INCREASED [None]
  - GRAFT VERSUS HOST DISEASE [None]
  - MULTI-ORGAN FAILURE [None]
  - SCEDOSPORIUM INFECTION [None]
